FAERS Safety Report 11755985 (Version 1)
Quarter: 2015Q4

REPORT INFORMATION
  Report Type: Spontaneous
  Country: US (occurrence: US)
  Receive Date: 20151119
  Receipt Date: 20151119
  Transmission Date: 20160304
  Serious: No
  Sender: FDA-Public Use
  Company Number: US-ALLERGAN-1509851US

PATIENT
  Sex: Female

DRUGS (3)
  1. ALPHAGAN P [Suspect]
     Active Substance: BRIMONIDINE TARTRATE
     Indication: INTRAOCULAR PRESSURE INCREASED
     Dosage: 1 DROP INTO EACH EYE TWICE DAILY
     Route: 047
  2. LUMIGAN [Concomitant]
     Active Substance: BIMATOPROST
     Indication: INTRAOCULAR PRESSURE INCREASED
     Dosage: UNK
     Route: 047
  3. TIMOLOL MALEATE. [Concomitant]
     Active Substance: TIMOLOL MALEATE
     Indication: INTRAOCULAR PRESSURE INCREASED
     Dosage: UNK
     Route: 047

REACTIONS (7)
  - Insomnia [Recovered/Resolved]
  - Eye discharge [Recovered/Resolved]
  - Vision blurred [Recovered/Resolved]
  - Nasal congestion [Recovered/Resolved]
  - Nightmare [Recovered/Resolved]
  - Fatigue [Recovered/Resolved]
  - Eye pruritus [Recovered/Resolved]
